FAERS Safety Report 15155748 (Version 2)
Quarter: 2021Q3

REPORT INFORMATION
  Report Type: Spontaneous
  Country: FR (occurrence: FR)
  Receive Date: 20180717
  Receipt Date: 20210720
  Transmission Date: 20211014
  Serious: Yes (Hospitalization)
  Sender: FDA-Public Use
  Company Number: PHHY2017FR199789

PATIENT
  Sex: Female

DRUGS (22)
  1. CRISANTASPASE [Suspect]
     Active Substance: ASPARAGINASE ERWINIA CHRYSANTHEMI
     Indication: ACUTE LYMPHOCYTIC LEUKAEMIA
     Dosage: 3200 IU, UNK
     Route: 042
     Dates: start: 20171102, end: 20171114
  2. VINCRISTINE [Suspect]
     Active Substance: VINCRISTINE
     Dosage: 2 MG, UNK
     Route: 042
  3. CYTARABINE. [Suspect]
     Active Substance: CYTARABINE
     Dosage: 30 MG
     Route: 037
  4. DEXAMETHASONE. [Suspect]
     Active Substance: DEXAMETHASONE
     Indication: ACUTE LYMPHOCYTIC LEUKAEMIA
     Dosage: 15MG (15 MG, UNK)
     Route: 048
  5. CYTARABINE. [Suspect]
     Active Substance: CYTARABINE
     Indication: ACUTE LYMPHOCYTIC LEUKAEMIA
     Dosage: 30MG (30 MG, UNK)
     Route: 037
     Dates: start: 20170528
  6. PEGASPARGASE [Suspect]
     Active Substance: PEGASPARGASE
     Indication: ACUTE LYMPHOCYTIC LEUKAEMIA
     Dosage: 3900 IU, UNK
     Route: 042
     Dates: start: 20170527, end: 20170712
  7. VINCRISTINE [Suspect]
     Active Substance: VINCRISTINE
     Indication: ACUTE LYMPHOCYTIC LEUKAEMIA
     Dosage: 2MG (2 MG, UNK)
     Route: 042
     Dates: start: 20170523
  8. ERWINASE [Suspect]
     Active Substance: ASPARAGINASE ERWINIA CHRYSANTHEMI
     Indication: ACUTE LYMPHOCYTIC LEUKAEMIA
     Dosage: 3200 IU, UNK
     Route: 042
     Dates: start: 20171102, end: 20171114
  9. 6?MERCAPTOPURINE MONOHYDRATE [Suspect]
     Active Substance: MERCAPTOPURINE
     Dosage: 40MG (40 MG, UNK)
     Route: 048
     Dates: start: 20170824
  10. CYTARABINE. [Suspect]
     Active Substance: CYTARABINE
     Dosage: 120 MG, UNK
     Route: 042
     Dates: start: 20170630
  11. HYDROCORTISONE. [Suspect]
     Active Substance: HYDROCORTISONE
     Indication: ACUTE LYMPHOCYTIC LEUKAEMIA
     Dosage: 15 MG UNK
     Route: 037
  12. HYDROCORTISONE. [Suspect]
     Active Substance: HYDROCORTISONE
     Dosage: 15MG (15 MG, UNK)
     Route: 037
     Dates: start: 20170528
  13. DEXAMETHASONE. [Suspect]
     Active Substance: DEXAMETHASONE
     Dosage: 15MG (15 MG, UNK)
     Route: 048
     Dates: start: 20171030
  14. METHOTREXATE. [Suspect]
     Active Substance: METHOTREXATE
     Indication: ACUTE LYMPHOCYTIC LEUKAEMIA
     Dosage: 15MG (15 MG, UNK)
     Route: 037
     Dates: start: 20170516
  15. METHOTREXATE. [Suspect]
     Active Substance: METHOTREXATE
     Dosage: 15 MG, UNK
     Route: 037
  16. ADRIAMYCIN [Suspect]
     Active Substance: DOXORUBICIN HYDROCHLORIDE
     Indication: ACUTE LYMPHOCYTIC LEUKAEMIA
     Dosage: 48 MG, UNK
     Route: 042
     Dates: start: 20171030
  17. ERWINASE [Suspect]
     Active Substance: ASPARAGINASE ERWINIA CHRYSANTHEMI
     Dosage: 3200 UNK, UNK
     Route: 042
     Dates: start: 20171114
  18. PREDNISONE. [Suspect]
     Active Substance: PREDNISONE
     Indication: ACUTE LYMPHOCYTIC LEUKAEMIA
     Dosage: 90MG (90 MG, UNK)
     Route: 048
     Dates: start: 20170516, end: 20170613
  19. DAUNORUBICIN [Suspect]
     Active Substance: DAUNORUBICIN
     Dosage: 47 MG, UNK
     Route: 042
     Dates: start: 20170613
  20. CYCLOPHOSPHAMIDE. [Suspect]
     Active Substance: CYCLOPHOSPHAMIDE
     Indication: ACUTE LYMPHOCYTIC LEUKAEMIA
     Dosage: 1560 MG, UNK
     Route: 042
     Dates: start: 20170628
  21. 6?MERCAPTOPURINE MONOHYDRATE [Suspect]
     Active Substance: MERCAPTOPURINE
     Indication: ACUTE LYMPHOCYTIC LEUKAEMIA
     Dosage: 90MG (90 MG, UNK)
     Route: 048
     Dates: start: 20170628
  22. DAUNORUBICIN [Suspect]
     Active Substance: DAUNORUBICIN
     Indication: ACUTE LYMPHOCYTIC LEUKAEMIA
     Dosage: 47MG (47 MG, UNK)
     Route: 042
     Dates: start: 20170523, end: 20170613

REACTIONS (4)
  - Breakthrough pain [Not Recovered/Not Resolved]
  - Pain in extremity [Recovered/Resolved]
  - Neuropathy peripheral [Recovered/Resolved]
  - Neuralgia [Not Recovered/Not Resolved]

NARRATIVE: CASE EVENT DATE: 20171120
